FAERS Safety Report 22048456 (Version 1)
Quarter: 2023Q1

REPORT INFORMATION
  Report Type: Spontaneous
  Country: DE (occurrence: DE)
  Receive Date: 20230301
  Receipt Date: 20230301
  Transmission Date: 20230418
  Serious: Yes (Other)
  Sender: FDA-Public Use
  Company Number: None

PATIENT
  Sex: Female
  Weight: 79 kg

DRUGS (12)
  1. CARBIDOPA\LEVODOPA [Suspect]
     Active Substance: CARBIDOPA\LEVODOPA
     Indication: Restless legs syndrome
     Dosage: 100 (MG/D) / 25 (MG/D)
  2. DULOXETINE [Suspect]
     Active Substance: DULOXETINE
     Indication: Depression
     Dosage: 60 (MG/D)
     Dates: start: 20210707, end: 20220401
  3. PREGABALIN [Suspect]
     Active Substance: PREGABALIN
     Indication: Neuralgia
     Dosage: 450 (MG/D)/ 450 MG/D, REDUCED TO 100 MG/D IN THE COURSE OF PREGNANCY
     Dates: start: 20210707, end: 20220401
  4. MIRTAZAPINE [Suspect]
     Active Substance: MIRTAZAPINE
     Indication: Depression
     Dosage: 30 (MG/D)/ 15 MG/D, INCREASED IN THE COURSE OF PREGNANCY TO 30 MG/D
     Dates: start: 20210707, end: 20220401
  5. HYDROMORPHONE [Concomitant]
     Active Substance: HYDROMORPHONE
     Indication: Bone pain
     Dosage: 2 (MG/D) / 2 MG/D, AT LEAST UNTIL GW 9.2, NOT KNOWN UNTIL WHEN
     Dates: start: 20210707, end: 20210910
  6. BENSERAZIDE\LEVODOPA [Concomitant]
     Active Substance: BENSERAZIDE\LEVODOPA
     Indication: Restless legs syndrome
     Dosage: 100 (MG/D) / 25 (MG/D)/ 100/25 MG/D
     Dates: start: 20210707, end: 20210910
  7. ATORVASTATIN [Concomitant]
     Active Substance: ATORVASTATIN
     Indication: Hypercholesterolaemia
     Dosage: 10 (MG/D)/ STOPPED IN EARLY PREGNANCY, GW NOT KNOWN
  8. FOLIC ACID [Concomitant]
     Active Substance: FOLIC ACID
     Indication: Prophylaxis of neural tube defect
     Dosage: 5 (MG/D)
     Dates: start: 20210707, end: 20220401
  9. PANTOPRAZOLE [Concomitant]
     Active Substance: PANTOPRAZOLE
     Indication: Gastrooesophageal reflux disease
     Dosage: 80 (MG/D) / 40 MG 1-2X/D
     Dates: start: 20210707, end: 20220401
  10. Novalgin [Concomitant]
     Indication: Bone pain
     Dosage: 3000 (MG/D)/ UP TO 3X 1000MG/D, ON DEMAND UNTIL MAX. GW 20;STRENGTH: DROPS
  11. EUTHYROX [Concomitant]
     Active Substance: LEVOTHYROXINE SODIUM
     Indication: Hypothyroidism
     Dosage: 75 (MICROGRAM/D)
     Dates: start: 20210707, end: 20220401
  12. BOOSTRIX [Concomitant]
     Active Substance: TETANUS TOXOID, REDUCED DIPHTHERIA TOXOID AND ACELLULAR PERTUSSIS VACCINE, ADSORBED ANTIGENS
     Indication: Immunisation
     Dates: start: 20220304, end: 20220304

REACTIONS (3)
  - Foetal death [Unknown]
  - Exposure during pregnancy [Unknown]
  - Stillbirth [Unknown]
